FAERS Safety Report 6529524-8 (Version None)
Quarter: 2010Q1

REPORT INFORMATION
  Report Type: 
  Country: None (occurrence: None)
  Receive Date: 20100107
  Receipt Date: 20100104
  Transmission Date: 20100710
  Serious: Yes (Death)
  Sender: FDA-Public Use
  Company Number: AR-ASTRAZENECA-2010SE00095

PATIENT
  Age: 54 Year
  Sex: Female

DRUGS (3)
  1. FASLODEX (NIS) [Suspect]
     Indication: BREAST CANCER
     Route: 030
     Dates: start: 20010801, end: 20091201
  2. OMEPRAZOLE [Concomitant]
     Indication: GASTRITIS PROPHYLAXIS
     Route: 048
     Dates: start: 20080101
  3. KLOSIDOL(DEXTROPROPOXIFENO-DIPIRONA)) [Concomitant]
     Indication: PAIN
     Route: 048
     Dates: start: 20080101, end: 20091201

REACTIONS (1)
  - DEATH [None]
